FAERS Safety Report 9546917 (Version 1)
Quarter: 2013Q2

REPORT INFORMATION
  Report Type: Spontaneous
  Country: US (occurrence: None)
  Receive Date: 20130606
  Receipt Date: 20130606
  Transmission Date: 20140414
  Serious: Yes (Death)
  Sender: FDA-Public Use
  Company Number: 2013SIPUSA00015

PATIENT
  Age: 89 Year
  Sex: Male

DRUGS (14)
  1. SIPULEUCEL-T (SIPULEUCEL-T) SUSPENSION [Suspect]
     Indication: PROSTATE CANCER METASTATIC
     Route: 042
     Dates: start: 20120806, end: 20120806
  2. ABIRATERONE (ABIRATERONE ACETATE) [Concomitant]
  3. ALEVE (NAPROXEN SODIUM) [Concomitant]
  4. LUPRON (LEUPRORELIN ACETATE) [Concomitant]
  5. SYNTHROUD (LEVOTHYROXINE SODIUM) [Concomitant]
  6. VERAPAMIL (VERAPAMIL HYDROCHLORIDE) (VERAPAMIL HYDROCHLORIDE) [Concomitant]
  7. ZOMETA (ZOLEDRONIC ACID) [Concomitant]
  8. COLACE [Concomitant]
  9. TOVIAZ (FESOTERODINE FUMARATE) [Concomitant]
  10. CALCIUM /VITAMIN D (CALCIUM, ERGOCALCIFEROL) [Concomitant]
  11. FUROSEMIDE (FUROSEMIDE) [Concomitant]
  12. MULTIVITAMIN (VITAMINS NOS) [Concomitant]
  13. COUMADIN (WARFARIN SODIUM) [Concomitant]
  14. PREDNISONE (PREDNISONE) [Concomitant]

REACTIONS (1)
  - Disease progression [None]
